FAERS Safety Report 9500305 (Version 1)
Quarter: 2013Q3

REPORT INFORMATION
  Report Type: Spontaneous
  Country: US (occurrence: None)
  Receive Date: 20130904
  Receipt Date: 20130904
  Transmission Date: 20140515
  Serious: Yes (Life-Threatening)
  Sender: FDA-Public Use
  Company Number: None

PATIENT
  Age: 50 Year
  Sex: Male
  Weight: 74.84 kg

DRUGS (2)
  1. AVODART [Suspect]
     Indication: PROSTATE CANCER
     Dosage: ONE CAPSULE ONCE DAILY TAKEN BY MOUTH.
     Route: 048
     Dates: start: 20130301, end: 20130815
  2. AVODART [Suspect]
     Indication: DIHYDROTESTOSTERONE INCREASED
     Dosage: ONE CAPSULE ONCE DAILY TAKEN BY MOUTH.
     Route: 048
     Dates: start: 20130301, end: 20130815

REACTIONS (7)
  - Libido decreased [None]
  - Erectile dysfunction [None]
  - Genital hypoaesthesia [None]
  - Emotional poverty [None]
  - Anxiety [None]
  - Depression [None]
  - Sexual dysfunction [None]
